FAERS Safety Report 14226669 (Version 1)
Quarter: 2017Q4

REPORT INFORMATION
  Report Type: Spontaneous
  Country: FR (occurrence: FR)
  Receive Date: 20171127
  Receipt Date: 20171127
  Transmission Date: 20180321
  Serious: Yes (Hospitalization)
  Sender: FDA-Public Use
  Company Number: FR-SA-2017SA230588

PATIENT
  Age: 69 Year
  Sex: Male

DRUGS (11)
  1. HYDROCHLOROTHIAZIDE. [Concomitant]
     Active Substance: HYDROCHLOROTHIAZIDE
  2. KARDEGIC [Concomitant]
     Active Substance: ASPIRIN DL-LYSINE
  3. AMIODARONE [Concomitant]
     Active Substance: AMIODARONE
  4. PANTOPRAZOLE [Concomitant]
     Active Substance: PANTOPRAZOLE
  5. XARELTO [Concomitant]
     Active Substance: RIVAROXABAN
     Route: 065
     Dates: end: 20171011
  6. LOVENOX [Suspect]
     Active Substance: ENOXAPARIN SODIUM
     Indication: ANTICOAGULANT THERAPY
     Route: 058
     Dates: start: 20171011, end: 20171015
  7. TAMSULOSIN [Concomitant]
     Active Substance: TAMSULOSIN
  8. NATISPRAY [Concomitant]
     Active Substance: NITROGLYCERIN
  9. ROSUVASTATIN. [Concomitant]
     Active Substance: ROSUVASTATIN
  10. BROMAZEPAM [Concomitant]
     Active Substance: BROMAZEPAM
  11. ACEBUTOLOL [Concomitant]
     Active Substance: ACEBUTOLOL

REACTIONS (2)
  - Thrombocytopenia [Recovered/Resolved]
  - Neutropenia [Recovered/Resolved]

NARRATIVE: CASE EVENT DATE: 20171015
